FAERS Safety Report 5024274-1 (Version None)
Quarter: 2006Q2

REPORT INFORMATION
  Report Type: 
  Country: None (occurrence: None)
  Receive Date: 20060607
  Receipt Date: 20060530
  Transmission Date: 20061013
  Serious: Yes (Death)
  Sender: FDA-Public Use
  Company Number: RS006051-J

PATIENT
  Age: 80 Year
  Sex: Female
  Weight: 51 kg

DRUGS (9)
  1. RABEPRAZOLE SODIUM [Suspect]
     Indication: GASTROINTESTINAL HAEMORRHAGE
     Dosage: 20 MG, 1 IN 1 D, ORAL
     Route: 048
     Dates: start: 20060420, end: 20060421
  2. PROCYLIN                  (BERAPROST SODIUM) [Suspect]
     Indication: ARTERIOSCLEROSIS
     Dosage: ORAL
     Route: 048
     Dates: start: 20060304, end: 20060418
  3. PROMAC (POLAPREZIN-C) [Concomitant]
  4. GLYBURIDE [Concomitant]
  5. METFORMIN HCL [Concomitant]
  6. NE-SOFT (TOCOPHEROL) [Concomitant]
  7. NORVASC [Concomitant]
  8. PLATIBIT (ALFACALCIDOL) [Concomitant]
  9. PRORENAL (LIMAPROST) [Concomitant]

REACTIONS (3)
  - FAECES DISCOLOURED [None]
  - GASTROINTESTINAL HAEMORRHAGE [None]
  - PALLOR [None]
